FAERS Safety Report 4804770-X (Version None)
Quarter: 2005Q4

REPORT INFORMATION
  Report Type: 
  Country: None (occurrence: None)
  Receive Date: 20051017
  Receipt Date: 20051010
  Transmission Date: 20060501
  Serious: Yes (Hospitalization)
  Sender: FDA-Public Use
  Company Number: 2005-133413-NL

PATIENT
  Age: 69 Year
  Sex: Male

DRUGS (9)
  1. MIRTAZAPINE [Suspect]
     Indication: DEPRESSION
     Dosage: 15 M G ORAL
     Route: 048
     Dates: end: 20050913
  2. FUSIDIC ACID [Suspect]
     Indication: STAPHYLOCOCCAL INFECTION
     Dosage: 500 MG TID ORAL
     Route: 048
     Dates: start: 20050906, end: 20050912
  3. LAMOTRIGINE [Concomitant]
  4. SIMVASTATIN [Concomitant]
  5. AMILORIDE HYDROCHLORIDE W/FUROSEMIDE [Concomitant]
  6. DIGOXIN [Concomitant]
  7. WARFARIN [Concomitant]
  8. TRIMETHOPRIM [Concomitant]
  9. MUPIROCIN [Concomitant]

REACTIONS (2)
  - INTERNATIONAL NORMALISED RATIO INCREASED [None]
  - JAUNDICE [None]
